FAERS Safety Report 5066792-6 (Version None)
Quarter: 2006Q3

REPORT INFORMATION
  Report Type: 
  Country: None (occurrence: None)
  Receive Date: 20060710
  Receipt Date: 20051111
  Transmission Date: 20061208
  Serious: Yes (Other)
  Sender: FDA-Public Use
  Company Number: US-2005-023784

PATIENT
  Age: 19 Year
  Sex: Female
  Weight: 49 kg

DRUGS (2)
  1. ULTRAVIST 300 [Suspect]
     Indication: COMPUTERISED TOMOGRAM ABDOMEN
     Dosage: 125 ML, 1 DOSE, INTRAVENOUS
     Route: 042
     Dates: start: 20051110, end: 20051110
  2. ESTROSTEP [Concomitant]

REACTIONS (1)
  - URTICARIA [None]
